FAERS Safety Report 25071606 (Version 3)
Quarter: 2025Q2

REPORT INFORMATION
  Report Type: Report from Study
  Country: MA (occurrence: MA)
  Receive Date: 20250313
  Receipt Date: 20250520
  Transmission Date: 20250716
  Serious: Yes (Death, Other)
  Sender: ABBVIE
  Company Number: MA-ABBVIE-6170216

PATIENT
  Age: 73 Year
  Sex: Male

DRUGS (1)
  1. VENETOCLAX [Suspect]
     Active Substance: VENETOCLAX
     Indication: Product used for unknown indication
     Route: 048

REACTIONS (7)
  - Disease complication [Fatal]
  - Hyponatraemia [Unknown]
  - Haemodilution [Unknown]
  - Ejection fraction decreased [Unknown]
  - Acute pulmonary oedema [Unknown]
  - Generalised oedema [Unknown]
  - Cardiac dysfunction [Unknown]
